FAERS Safety Report 4618852-9 (Version None)
Quarter: 2005Q1

REPORT INFORMATION
  Report Type: 
  Country: None (occurrence: None)
  Receive Date: 20050323
  Receipt Date: 20050316
  Transmission Date: 20050727
  Serious: Yes (Other)
  Sender: FDA-Public Use
  Company Number: 2004120110

PATIENT
  Age: 76 Year
  Sex: Male
  Weight: 87.0906 kg

DRUGS (8)
  1. CADUET [Suspect]
     Indication: BLOOD CHOLESTEROL INCREASED
     Dosage: (1 IN 1 D), ORAL
     Route: 048
     Dates: start: 20040801, end: 20041201
  2. CADUET [Suspect]
     Indication: HYPERTENSION
     Dosage: (1 IN 1 D), ORAL
     Route: 048
     Dates: start: 20040801, end: 20041201
  3. NORVASC [Suspect]
     Indication: HYPERTENSION
  4. LIPITOR [Suspect]
     Indication: BLOOD CHOLESTEROL INCREASED
  5. CLOPIDOGREL BISULFATE [Concomitant]
  6. ASPIRIN [Concomitant]
  7. CENTRUM SILVER (ASCORBIC ACID, CALCIUM, MINERALS NOS, RETINOL, TOCOPHE [Concomitant]
  8. ASCORBIC ACID/COPPER/TOCOPHEROL/ZINC (ASCORBIC ACID, COPPER, TOCOPHERO [Concomitant]

REACTIONS (6)
  - BONE CANCER METASTATIC [None]
  - BUTTOCK PAIN [None]
  - MYALGIA [None]
  - PAIN IN EXTREMITY [None]
  - PARAESTHESIA [None]
  - PHARMACEUTICAL PRODUCT COMPLAINT [None]
